FAERS Safety Report 18746416 (Version 3)
Quarter: 2021Q2

REPORT INFORMATION
  Report Type: Spontaneous
  Country: US (occurrence: US)
  Receive Date: 20210115
  Receipt Date: 20210616
  Transmission Date: 20210717
  Serious: Yes (Death, Hospitalization, Other)
  Sender: FDA-Public Use
  Company Number: US-CATALYST PHARMACEUTICALS, INC-2021CAT00011

PATIENT
  Age: 75 Year
  Sex: Female
  Weight: 58.96 kg

DRUGS (19)
  1. METOPROLOL TARTRATE. [Concomitant]
     Active Substance: METOPROLOL TARTRATE
  2. ISOSOURCE 1.5 CALCIUM [Concomitant]
     Dosage: 1 CAN EVERY 4 HOURS
  3. NYSTATIN. [Concomitant]
     Active Substance: NYSTATIN
     Dosage: APPLIED TO HER MOUTH
     Route: 061
  4. ACETYLCYSTEINE INHALER [Concomitant]
  5. FIRDAPSE [Suspect]
     Active Substance: AMIFAMPRIDINE PHOSPHATE
     Dosage: 10 MG, 2X/DAY
  6. MIDODRINE [Concomitant]
     Active Substance: MIDODRINE
  7. IPRATROPIUM [Concomitant]
     Active Substance: IPRATROPIUM
  8. MELATONIN [Concomitant]
     Active Substance: MELATONIN
     Dosage: AT NIGHT
  9. NYSTATIN. [Concomitant]
     Active Substance: NYSTATIN
  10. BUDESONIDE INHALER [Concomitant]
  11. IRON LIQUID [Concomitant]
  12. ACETYLCYSTEINE. [Concomitant]
     Active Substance: ACETYLCYSTEINE
     Dosage: UNK, 3X/DAY
     Route: 045
  13. ACETAMINOPHEN. [Concomitant]
     Active Substance: ACETAMINOPHEN
     Dosage: UNK, AS NEEDED FOR PAIN
  14. CO (COENZYME) Q10 LIQUID [Concomitant]
  15. BUDESONIDE. [Concomitant]
     Active Substance: BUDESONIDE
  16. FIRDAPSE [Suspect]
     Active Substance: AMIFAMPRIDINE PHOSPHATE
     Indication: MYASTHENIC SYNDROME
     Dosage: 10 MG, 2X/DAY
     Dates: start: 2020
  17. IPRATROPIUM, ALBUTEROL INHALER [Concomitant]
  18. CALCIUM LIQUID [Concomitant]
  19. MULTIVITAMIN LIQUID [Concomitant]

REACTIONS (2)
  - Disease progression [Fatal]
  - Pneumonia staphylococcal [Recovered/Resolved with Sequelae]

NARRATIVE: CASE EVENT DATE: 202010
